FAERS Safety Report 5537228-3 (Version None)
Quarter: 2007Q4

REPORT INFORMATION
  Report Type: 
  Country: None (occurrence: None)
  Receive Date: 20071207
  Receipt Date: 20071128
  Transmission Date: 20080405
  Serious: Yes (Hospitalization, Disabling, Other)
  Sender: FDA-Public Use
  Company Number: US-ROCHE-393371

PATIENT
  Age: 26 Year
  Sex: Male

DRUGS (3)
  1. ACCUTANE [Suspect]
     Indication: ACNE
     Route: 048
     Dates: start: 19970815, end: 19971012
  2. ACCUTANE [Suspect]
     Route: 048
     Dates: start: 19971013, end: 19980215
  3. KENALOG [Concomitant]
     Indication: ACNE
     Dosage: THE PATIENT HAD MANY KENALOG INJECTIONS FROM JULY 1994 THROUGH TO EARLY 1997.  THE PATIENT WAS  THE+
     Dates: start: 19940701, end: 20020501

REACTIONS (14)
  - ABDOMINAL PAIN [None]
  - CARTILAGE INJURY [None]
  - COLITIS [None]
  - COLITIS ULCERATIVE [None]
  - DEPRESSION [None]
  - DIARRHOEA [None]
  - DRY SKIN [None]
  - EPISTAXIS [None]
  - GASTROINTESTINAL DISORDER [None]
  - HYPERTRIGLYCERIDAEMIA [None]
  - INFLAMMATORY BOWEL DISEASE [None]
  - INTESTINAL HAEMORRHAGE [None]
  - IRRITABLE BOWEL SYNDROME [None]
  - MULTI-ORGAN DISORDER [None]
